FAERS Safety Report 23029422 (Version 1)
Quarter: 2023Q4

REPORT INFORMATION
  Report Type: Spontaneous
  Country: CN (occurrence: CN)
  Receive Date: 20231004
  Receipt Date: 20231004
  Transmission Date: 20240109
  Serious: Yes (Other)
  Sender: FDA-Public Use
  Company Number: CN-PFIZER INC-PV202300163711

PATIENT
  Age: 48 Year
  Sex: Female
  Weight: 64 kg

DRUGS (7)
  1. MEDROL [Suspect]
     Active Substance: METHYLPREDNISOLONE
     Indication: Breast cancer
     Dosage: 6 MG, 1X/DAY
     Route: 048
     Dates: start: 20230608, end: 20230618
  2. MEDROL [Suspect]
     Active Substance: METHYLPREDNISOLONE
     Dosage: 20 MG, 1X/DAY
     Route: 048
     Dates: start: 20230625, end: 20230705
  3. MEDROL [Suspect]
     Active Substance: METHYLPREDNISOLONE
     Dosage: 6 MG, 1X/DAY
     Route: 048
     Dates: start: 20230706, end: 20230803
  4. MEDROL [Suspect]
     Active Substance: METHYLPREDNISOLONE
     Dosage: 36 MG, 1X/DAY
     Route: 048
     Dates: start: 20230810, end: 20230814
  5. METHYLPREDNISOLONE SODIUM SUCCINATE [Suspect]
     Active Substance: METHYLPREDNISOLONE SODIUM SUCCINATE
     Indication: Autoimmune hepatitis
     Dosage: 40 MG, 1X/DAY
     Route: 041
     Dates: start: 20230619, end: 20230624
  6. METHYLPREDNISOLONE SODIUM SUCCINATE [Suspect]
     Active Substance: METHYLPREDNISOLONE SODIUM SUCCINATE
     Dosage: 40 MG, SINGLE
     Route: 041
     Dates: start: 20230731, end: 20230731
  7. METHYLPREDNISOLONE SODIUM SUCCINATE [Suspect]
     Active Substance: METHYLPREDNISOLONE SODIUM SUCCINATE
     Dosage: 40 MG, SINGLE
     Route: 041
     Dates: start: 20230803, end: 20230810

REACTIONS (2)
  - Dyslipidaemia [Recovering/Resolving]
  - Off label use [Unknown]

NARRATIVE: CASE EVENT DATE: 20230608
